FAERS Safety Report 7787303-8 (Version None)
Quarter: 2011Q3

REPORT INFORMATION
  Report Type: 
  Country: None (occurrence: None)
  Receive Date: 20110929
  Receipt Date: 20110923
  Transmission Date: 20111222
  Serious: Yes (Death, Other)
  Sender: FDA-Public Use
  Company Number: PHHY2011JP85157

PATIENT
  Age: 51 Year
  Sex: Female

DRUGS (3)
  1. IRINOTECAN HCL [Concomitant]
  2. CARBOPLATIN [Suspect]
     Indication: OVARIAN CANCER METASTATIC
     Dosage: UNK
  3. PACLITAXEL [Concomitant]

REACTIONS (16)
  - CONVULSION [None]
  - ATAXIA [None]
  - BLOOD OSMOLARITY DECREASED [None]
  - HEADACHE [None]
  - NEOPLASM PROGRESSION [None]
  - MOOD ALTERED [None]
  - METASTASES TO LYMPH NODES [None]
  - GENERAL PHYSICAL CONDITION ABNORMAL [None]
  - URINE SODIUM INCREASED [None]
  - HYPERSENSITIVITY [None]
  - DEATH [None]
  - LOSS OF CONSCIOUSNESS [None]
  - HYPONATRAEMIA [None]
  - TRANSIENT ISCHAEMIC ATTACK [None]
  - MENINGITIS [None]
  - INAPPROPRIATE ANTIDIURETIC HORMONE SECRETION [None]
